FAERS Safety Report 17292373 (Version 1)
Quarter: 2020Q1

REPORT INFORMATION
  Report Type: Spontaneous
  Country: RU (occurrence: RU)
  Receive Date: 20200121
  Receipt Date: 20200121
  Transmission Date: 20200409
  Serious: Yes (Life-Threatening, Hospitalization)
  Sender: FDA-Public Use
  Company Number: RU-BAYER-2019-234468

PATIENT
  Age: 76 Year
  Sex: Female

DRUGS (1)
  1. ULTRAVIST [Suspect]
     Active Substance: IOPROMIDE
     Indication: BREAST SCAN
     Dosage: UNK, ONCE

REACTIONS (1)
  - Anaphylactic reaction [Unknown]
